FAERS Safety Report 22230473 (Version 2)
Quarter: 2023Q2

REPORT INFORMATION
  Report Type: Report from Study
  Country: US (occurrence: US)
  Receive Date: 20230419
  Receipt Date: 20230421
  Transmission Date: 20230721
  Serious: Yes (Other)
  Sender: FDA-Public Use
  Company Number: US-ABBVIE-4734687

PATIENT
  Age: 64 Year
  Sex: Female
  Weight: 40.369 kg

DRUGS (2)
  1. DUOPA [Suspect]
     Active Substance: CARBIDOPA\LEVODOPA
     Indication: Parkinson^s disease
     Dates: start: 20230328
  2. DUOPA [Suspect]
     Active Substance: CARBIDOPA\LEVODOPA
     Indication: Product used for unknown indication
     Route: 050
     Dates: start: 20230328

REACTIONS (8)
  - Soft tissue excision [Recovered/Resolved]
  - Medical device site laceration [Not Recovered/Not Resolved]
  - Medical device site pain [Recovered/Resolved]
  - Stoma site discharge [Recovering/Resolving]
  - Stoma site erythema [Recovered/Resolved]
  - Medical device site warmth [Not Recovered/Not Resolved]
  - Stoma site haemorrhage [Recovered/Resolved]
  - Stoma site pain [Not Recovered/Not Resolved]

NARRATIVE: CASE EVENT DATE: 20230413
